FAERS Safety Report 5644082-8 (Version None)
Quarter: 2008Q1

REPORT INFORMATION
  Report Type: 
  Country: None (occurrence: None)
  Receive Date: 20080226
  Receipt Date: 20080212
  Transmission Date: 20080703
  Serious: Yes (Hospitalization)
  Sender: FDA-Public Use
  Company Number: B0509114A

PATIENT
  Age: 21 Year
  Sex: Female

DRUGS (12)
  1. ALBENZA [Suspect]
     Indication: DRUG USE FOR UNKNOWN INDICATION
  2. ACETAMINOPHEN [Suspect]
     Indication: DRUG USE FOR UNKNOWN INDICATION
  3. CIFLOX (FORMULATION UNKNOWN) (CIFLOX) [Suspect]
     Indication: DRUG USE FOR UNKNOWN INDICATION
  4. DOXYCYCLINE [Suspect]
     Indication: MALARIA PROPHYLAXIS
     Dates: start: 20071015, end: 20071019
  5. SULFAMETOPYRAZINE (FORMULATION UNKNOWN) (SULFALENE) [Suspect]
     Indication: DRUG USE FOR UNKNOWN INDICATION
     Dosage: ORAL
     Route: 048
     Dates: start: 20071029, end: 20071031
  6. DARAPRIM [Suspect]
     Indication: DRUG USE FOR UNKNOWN INDICATION
     Dosage: ORAL
     Route: 048
     Dates: start: 20071020, end: 20071031
  7. ALUMINIUM PHOSPHATE GEL [Concomitant]
  8. LOPERAMIDE HYDROCHLORIDE [Concomitant]
  9. METOPIMAZINE [Concomitant]
  10. HPV VACCINE (NON-GSK) [Concomitant]
  11. SODIUM ARTESUNATE [Concomitant]
  12. MALARIA MEDICATION [Concomitant]

REACTIONS (2)
  - AGRANULOCYTOSIS [None]
  - PYREXIA [None]
